FAERS Safety Report 5349501-2 (Version None)
Quarter: 2007Q2

REPORT INFORMATION
  Report Type: 
  Country: None (occurrence: None)
  Receive Date: 20070607
  Receipt Date: 20070530
  Transmission Date: 20071010
  Serious: Yes (Death, Other)
  Sender: FDA-Public Use
  Company Number: IE-ELI_LILLY_AND_COMPANY-IE200703002218

PATIENT
  Age: 61 Year
  Sex: Female
  Weight: 60 kg

DRUGS (6)
  1. XIGRIS [Suspect]
     Indication: SEPSIS
     Dosage: 1.44 MG, EVERY HOUR
     Route: 042
     Dates: start: 20070305, end: 20070307
  2. DF118 [Concomitant]
  3. VENTOLIN                                /SCH/ [Concomitant]
  4. SPIRIVA [Concomitant]
  5. AMITRIPTYLINE HCL [Concomitant]
  6. ZOLPIDEM TARTRATE [Concomitant]

REACTIONS (3)
  - ACTIVATED PARTIAL THROMBOPLASTIN TIME PROLONGED [None]
  - MULTI-ORGAN FAILURE [None]
  - SEPSIS [None]
